FAERS Safety Report 25491988 (Version 1)
Quarter: 2025Q2

REPORT INFORMATION
  Report Type: Spontaneous
  Country: US (occurrence: US)
  Receive Date: 20250630
  Receipt Date: 20250630
  Transmission Date: 20250717
  Serious: No
  Sender: GLENMARK
  Company Number: US-GLENMARK PHARMACEUTICALS-2025GMK100821

PATIENT
  Age: 58 Year
  Sex: Female

DRUGS (20)
  1. RILUZOLE [Suspect]
     Active Substance: RILUZOLE
     Indication: Hereditary ataxia
     Route: 065
  2. GABAPENTIN [Suspect]
     Active Substance: GABAPENTIN
     Indication: Hereditary ataxia
     Route: 065
  3. MECLIZINE [Suspect]
     Active Substance: MECLIZINE HYDROCHLORIDE
     Indication: Hereditary ataxia
     Route: 065
  4. DALFAMPRIDINE [Suspect]
     Active Substance: DALFAMPRIDINE
     Indication: Hereditary ataxia
     Route: 065
  5. BACLOFEN [Suspect]
     Active Substance: BACLOFEN
     Indication: Hereditary ataxia
     Route: 065
  6. ACETAZOLAMIDE [Suspect]
     Active Substance: ACETAZOLAMIDE
     Indication: Hereditary ataxia
     Route: 065
  7. BOTULINUM TOXIN TYPE A [Suspect]
     Active Substance: BOTULINUM TOXIN TYPE A
     Indication: Hereditary ataxia
     Route: 065
  8. AMANTADINE [Suspect]
     Active Substance: AMANTADINE
     Indication: Hereditary ataxia
     Route: 065
  9. MIRTAZAPINE [Suspect]
     Active Substance: MIRTAZAPINE
     Indication: Hereditary ataxia
     Route: 065
  10. PANTOPRAZOLE [Suspect]
     Active Substance: PANTOPRAZOLE
     Indication: Hereditary ataxia
     Route: 065
  11. ACETYLLEUCINE [Suspect]
     Active Substance: ACETYLLEUCINE
     Indication: Hereditary ataxia
     Route: 065
  12. CARBIDOPA\LEVODOPA [Suspect]
     Active Substance: CARBIDOPA\LEVODOPA
     Indication: Hereditary ataxia
     Route: 065
  13. MODAFINIL [Suspect]
     Active Substance: MODAFINIL
     Indication: Hereditary ataxia
     Route: 065
  14. COENZYME Q10 [Suspect]
     Active Substance: DIETARY SUPPLEMENT\UBIDECARENONE
     Indication: Hereditary ataxia
     Route: 065
  15. HUMAN IMMUNOGLOBULIN G [Suspect]
     Active Substance: HUMAN IMMUNOGLOBULIN G
     Indication: Hereditary ataxia
     Route: 042
  16. VORTIOXETINE [Concomitant]
     Active Substance: VORTIOXETINE
     Indication: Product used for unknown indication
     Route: 065
  17. ROSUVASTATIN [Concomitant]
     Active Substance: ROSUVASTATIN
     Indication: Product used for unknown indication
     Route: 065
  18. ESTROGENS\PROGESTERONE [Concomitant]
     Active Substance: ESTROGENS\PROGESTERONE
     Indication: Product used for unknown indication
     Route: 065
  19. ONDANSETRON [Concomitant]
     Active Substance: ONDANSETRON
     Indication: Product used for unknown indication
     Route: 065
  20. TRORILUZOLE [Concomitant]
     Active Substance: TRORILUZOLE
     Indication: Product used for unknown indication
     Dosage: 200 MILLIGRAM, QD
     Route: 065
     Dates: start: 201805

REACTIONS (2)
  - Treatment failure [Unknown]
  - Product use in unapproved indication [Unknown]
